FAERS Safety Report 5389509-4 (Version None)
Quarter: 2007Q3

REPORT INFORMATION
  Report Type: 
  Country: None (occurrence: None)
  Receive Date: 20070717
  Receipt Date: 20070705
  Transmission Date: 20080115
  Serious: Yes (Hospitalization)
  Sender: FDA-Public Use
  Company Number: DE-PFIZER INC-2007012809

PATIENT
  Sex: Female

DRUGS (3)
  1. LYRICA [Suspect]
     Indication: PARTIAL SEIZURES
     Route: 048
  2. OXCARBAZEPINE [Suspect]
     Indication: PARTIAL SEIZURES
     Dosage: DAILY DOSE:2400MG
     Route: 048
  3. LEVETIRACETAM [Suspect]
     Indication: PARTIAL SEIZURES
     Dosage: DAILY DOSE:4000MG
     Route: 048

REACTIONS (1)
  - PEMPHIGOID [None]
